FAERS Safety Report 8010082-6 (Version None)
Quarter: 2011Q4

REPORT INFORMATION
  Report Type: 
  Country: None (occurrence: None)
  Receive Date: 20111228
  Receipt Date: 20111003
  Transmission Date: 20120403
  Serious: Yes (Disabling, Other)
  Sender: FDA-Public Use
  Company Number: DK-BAYER-201021818GPV

PATIENT
  Age: 79 Year
  Sex: Female
  Weight: 90 kg

DRUGS (9)
  1. ARANESP [Concomitant]
     Indication: RED BLOOD CELL COUNT DECREASED
     Route: 058
  2. GADAVIST [Suspect]
     Indication: NUCLEAR MAGNETIC RESONANCE IMAGING
  3. ATACAND [Concomitant]
     Indication: BLOOD PRESSURE INCREASED
     Dosage: 16 MILLIGRAM(S)
     Route: 048
  4. FUROSEMIDE [Concomitant]
     Indication: BLOOD PRESSURE INCREASED
     Route: 048
  5. GADAVIST [Suspect]
     Indication: SCAN WITH CONTRAST
     Dosage: 1 MILLIMOLE(S)/ML
     Route: 042
     Dates: start: 20081107, end: 20081107
  6. METOPROLOL SUCCINATE [Concomitant]
     Indication: BLOOD PRESSURE INCREASED
     Dosage: 50 MILLIGRAM(S)
     Route: 048
  7. MIDOTENS [Concomitant]
     Indication: BLOOD PRESSURE INCREASED
     Route: 048
  8. CALCIUM POLYSTYRENE SULFONATE [Concomitant]
     Indication: HYPERKALAEMIA
  9. ANTITHROMBOTIC AGENTS [Concomitant]
     Indication: THROMBOSIS PROPHYLAXIS

REACTIONS (11)
  - JOINT SWELLING [None]
  - MUSCLE SWELLING [None]
  - SKIN HYPERTROPHY [None]
  - RHABDOMYOLYSIS [None]
  - SKIN DISCOLOURATION [None]
  - MUSCULAR WEAKNESS [None]
  - RESTLESS LEGS SYNDROME [None]
  - NEPHROGENIC SYSTEMIC FIBROSIS [None]
  - JOINT STIFFNESS [None]
  - MUSCULOSKELETAL STIFFNESS [None]
  - PAIN IN EXTREMITY [None]
